FAERS Safety Report 23688354 (Version 1)
Quarter: 2024Q1

REPORT INFORMATION
  Report Type: Spontaneous
  Country: JP (occurrence: None)
  Receive Date: 20240329
  Receipt Date: 20240329
  Transmission Date: 20240410
  Serious: Yes (Death, Other)
  Sender: FDA-Public Use
  Company Number: 2024A075299

PATIENT
  Age: 76 Year
  Sex: Male

DRUGS (2)
  1. ONDEXXYA [Suspect]
     Active Substance: ANDEXANET ALFA
     Dosage: SEE NARRATIVE.
     Route: 042
  2. UNSPECIFIED INGREDIENT [Concomitant]
     Active Substance: UNSPECIFIED INGREDIENT
     Indication: Embolic stroke
     Dosage: DOSE UNKNOWN
     Route: 048

REACTIONS (2)
  - Exsanguination [Fatal]
  - Traumatic shock [Fatal]
